FAERS Safety Report 11248781 (Version 1)
Quarter: 2015Q3

REPORT INFORMATION
  Report Type: Spontaneous
  Country: US (occurrence: US)
  Receive Date: 20150708
  Receipt Date: 20150708
  Transmission Date: 20151125
  Serious: No
  Sender: FDA-Public Use
  Company Number: US-ELI_LILLY_AND_COMPANY-US201009000533

PATIENT
  Sex: Female

DRUGS (3)
  1. PROZAC WEEKLY [Suspect]
     Active Substance: FLUOXETINE HYDROCHLORIDE
     Indication: OBSESSIVE-COMPULSIVE DISORDER
     Dosage: 90 MG, 3/W
  2. PROZAC WEEKLY [Suspect]
     Active Substance: FLUOXETINE HYDROCHLORIDE
     Dosage: 90 MG, 3/W
  3. PROZAC WEEKLY [Suspect]
     Active Substance: FLUOXETINE HYDROCHLORIDE
     Indication: OBSESSIVE-COMPULSIVE DISORDER
     Dosage: 90 MG, 3/W

REACTIONS (3)
  - Dysgeusia [Recovered/Resolved]
  - Prescribed overdose [Recovered/Resolved]
  - Product taste abnormal [Recovered/Resolved]
